FAERS Safety Report 25642165 (Version 1)
Quarter: 2025Q3

REPORT INFORMATION
  Report Type: Spontaneous
  Country: US (occurrence: US)
  Receive Date: 20250805
  Receipt Date: 20250805
  Transmission Date: 20251021
  Serious: No
  Sender: PRINSTON PHARMACEUTICAL
  Company Number: US-PRINSTON PHARMACEUTICAL INC.-2024PRN00338

PATIENT
  Sex: Female

DRUGS (6)
  1. LISINOPRIL [Suspect]
     Active Substance: LISINOPRIL
     Dates: end: 2024
  2. TYMLOS [Suspect]
     Active Substance: ABALOPARATIDE
     Indication: Osteoporosis
     Dosage: 80 ?G, 1X/DAY
     Route: 058
     Dates: start: 20240614
  3. ASPIRIN [Concomitant]
     Active Substance: ASPIRIN
  4. BREZTRI [Concomitant]
     Active Substance: BUDESONIDE\FORMOTEROL\GLYCOPYRROLATE
  5. PSYLLIUM HUSK [Concomitant]
     Active Substance: PSYLLIUM HUSK
  6. OMEPRAZOLE [Concomitant]
     Active Substance: OMEPRAZOLE

REACTIONS (1)
  - Hypotension [Not Recovered/Not Resolved]

NARRATIVE: CASE EVENT DATE: 20240101
